FAERS Safety Report 17510308 (Version 1)
Quarter: 2020Q1

REPORT INFORMATION
  Report Type: Spontaneous
  Country: CN (occurrence: CN)
  Receive Date: 20200306
  Receipt Date: 20200306
  Transmission Date: 20200409
  Serious: Yes (Life-Threatening)
  Sender: FDA-Public Use
  Company Number: CN-009507513-2003CHN000312

PATIENT
  Age: 26 Year
  Sex: Female
  Weight: 69 kg

DRUGS (1)
  1. DIPROSPAN [Suspect]
     Active Substance: BETAMETHASONE DIPROPIONATE\BETAMETHASONE SODIUM PHOSPHATE
     Indication: HYPERSENSITIVITY
     Dosage: 1 MILLILITER, QD
     Route: 030
     Dates: start: 20200220, end: 20200220

REACTIONS (9)
  - Tic [Recovering/Resolving]
  - Euphoric mood [Recovering/Resolving]
  - Chills [Recovering/Resolving]
  - Delirium [Recovering/Resolving]
  - Tachypnoea [Recovering/Resolving]
  - Pyrexia [Recovering/Resolving]
  - Nausea [Recovering/Resolving]
  - Affect lability [Recovering/Resolving]
  - Vomiting [Recovering/Resolving]

NARRATIVE: CASE EVENT DATE: 20200220
